FAERS Safety Report 13950901 (Version 1)
Quarter: 2017Q3

REPORT INFORMATION
  Report Type: Spontaneous
  Country: US (occurrence: US)
  Receive Date: 20170908
  Receipt Date: 20170908
  Transmission Date: 20171128
  Serious: No
  Sender: FDA-Public Use
  Company Number: US-ROCHE-1142742

PATIENT
  Sex: Female

DRUGS (6)
  1. RITUXAN [Suspect]
     Active Substance: RITUXIMAB
     Indication: PLASMA CELL MYELOMA
     Route: 065
  2. ALKERAN [Concomitant]
     Active Substance: MELPHALAN
  3. CYTOXAN [Concomitant]
     Active Substance: CYCLOPHOSPHAMIDE
  4. MOTRIN [Concomitant]
     Active Substance: IBUPROFEN
     Route: 048
  5. PREDNISONE. [Concomitant]
     Active Substance: PREDNISONE
  6. TYLENOL [Concomitant]
     Active Substance: ACETAMINOPHEN
     Route: 048

REACTIONS (13)
  - Halo vision [Unknown]
  - Photophobia [Unknown]
  - Abdominal distension [Unknown]
  - Back pain [Unknown]
  - Vision blurred [Unknown]
  - Dysphagia [Unknown]
  - Headache [Unknown]
  - Dysphonia [Unknown]
  - Rhinorrhoea [Unknown]
  - Muscle spasms [Unknown]
  - Eye pain [Unknown]
  - Otorrhoea [Unknown]
  - Dyspnoea [Unknown]
